FAERS Safety Report 15006972 (Version 2)
Quarter: 2018Q2

REPORT INFORMATION
  Report Type: Spontaneous
  Country: AR (occurrence: AR)
  Receive Date: 20180613
  Receipt Date: 20180620
  Transmission Date: 20180711
  Serious: Yes (Other)
  Sender: FDA-Public Use
  Company Number: AR-PFIZER INC-2017454175

PATIENT
  Age: 10 Year
  Sex: Female

DRUGS (1)
  1. GENOTROPIN [Suspect]
     Active Substance: SOMATROPIN
     Indication: BODY HEIGHT BELOW NORMAL
     Dosage: UNK (1MG TO 1.4 MG, SIX TIMES PER WEEK)
     Dates: start: 20170830

REACTIONS (6)
  - Blood glucose increased [Unknown]
  - Fall [Recovering/Resolving]
  - Contusion [Recovering/Resolving]
  - Limb injury [Recovering/Resolving]
  - Inflammation [Recovering/Resolving]
  - Noonan syndrome [Unknown]

NARRATIVE: CASE EVENT DATE: 201709
